FAERS Safety Report 26172584 (Version 1)
Quarter: 2025Q4

REPORT INFORMATION
  Report Type: Spontaneous
  Country: CN (occurrence: CN)
  Receive Date: 20251218
  Receipt Date: 20251218
  Transmission Date: 20260118
  Serious: Yes (Hospitalization)
  Sender: AUROBINDO
  Company Number: CN-MLMSERVICE-20251126-PI727367-00303-2

PATIENT
  Age: 56 Year
  Sex: Male

DRUGS (16)
  1. AMLODIPINE [Interacting]
     Active Substance: AMLODIPINE BESYLATE
     Indication: Endocrine hypertension
     Dosage: 5 MILLIGRAM, TWO TIMES A DAY
     Route: 065
  2. SPIRONOLACTONE [Interacting]
     Active Substance: SPIRONOLACTONE
     Indication: Hyperaldosteronism
     Dosage: 20 MILLIGRAM, 3 TIMES A DAY
     Route: 065
  3. SPIRONOLACTONE [Interacting]
     Active Substance: SPIRONOLACTONE
     Dosage: 20 MILLIGRAM, TWO TIMES A DAY
  4. BISOPROLOL [Interacting]
     Active Substance: BISOPROLOL
     Indication: Endocrine hypertension
     Dosage: 5 MILLIGRAM, ONCE A DAY
     Route: 065
  5. BISOPROLOL [Interacting]
     Active Substance: BISOPROLOL
     Dosage: 2.5 MILLIGRAM, ONCE A DAY
     Route: 065
  6. TERAZOSIN [Interacting]
     Active Substance: TERAZOSIN HYDROCHLORIDE
     Indication: Endocrine hypertension
     Dosage: 4 MILLIGRAM, 3 TIMES A DAY
     Route: 065
  7. TERAZOSIN [Interacting]
     Active Substance: TERAZOSIN HYDROCHLORIDE
     Dosage: 2 MILLIGRAM, ONCE A DAY
     Route: 065
  8. DILTIAZEM [Interacting]
     Active Substance: DILTIAZEM
     Indication: Hypertension
     Dosage: 90 MILLIGRAM, TWO TIMES A DAY
     Route: 065
  9. DOXAZOSIN [Interacting]
     Active Substance: DOXAZOSIN MESYLATE
     Indication: Endocrine hypertension
     Dosage: 4 MILLIGRAM, TWO TIMES A DAY
     Route: 065
  10. NIFEDIPINE [Interacting]
     Active Substance: NIFEDIPINE
     Indication: Endocrine hypertension
     Dosage: 30 MILLIGRAM, ONCE A DAY
     Route: 065
  11. ISOSORBIDE MONONITRATE [Interacting]
     Active Substance: ISOSORBIDE MONONITRATE
     Indication: Chest discomfort
     Dosage: 40 MILLIGRAM, ONCE A DAY
     Route: 065
  12. VALSARTAN [Interacting]
     Active Substance: VALSARTAN
     Indication: Endocrine hypertension
     Dosage: 80 MILLIGRAM
     Route: 065
  13. OLMESARTAN [Interacting]
     Active Substance: OLMESARTAN
     Indication: Endocrine hypertension
     Dosage: 20 MILLIGRAM, TWO TIMES A DAY
     Route: 065
  14. CLONIDINE [Interacting]
     Active Substance: CLONIDINE
     Indication: Chest discomfort
     Dosage: 75 MICROGRAM, TWO TIMES A DAY
     Route: 065
  15. RIFAMPIN [Interacting]
     Active Substance: RIFAMPIN
     Indication: Brucellosis
     Dosage: 600 MILLIGRAM, ONCE A DAY
     Route: 065
  16. DOXYCYCLINE [Concomitant]
     Active Substance: DOXYCYCLINE
     Indication: Brucellosis
     Dosage: 100 MILLIGRAM, TWO TIMES A DAY
     Route: 065

REACTIONS (5)
  - Drug level decreased [Recovered/Resolved]
  - False positive investigation result [Recovered/Resolved]
  - Therapeutic product effect decreased [Recovered/Resolved]
  - Drug interaction [Recovered/Resolved]
  - Hypertension [Recovered/Resolved]
